FAERS Safety Report 5280567-4 (Version None)
Quarter: 2007Q1

REPORT INFORMATION
  Report Type: 
  Country: None (occurrence: None)
  Receive Date: 20061229
  Receipt Date: 20060720
  Transmission Date: 20070707
  Serious: Yes (Other)
  Sender: FDA-Public Use
  Company Number: 2006UW14848

PATIENT
  Age: 68 Year
  Sex: Female
  Weight: 91.172 kg

DRUGS (7)
  1. CRESTOR [Suspect]
     Indication: HYPERCHOLESTEROLAEMIA
     Dosage: 10 MG QD PO
     Route: 048
     Dates: start: 20060703
  2. NORVASC /DK/ [Concomitant]
  3. METFORMIN HCL [Concomitant]
  4. GLIPISIDE [Concomitant]
  5. LASIX [Concomitant]
  6. INDAPAMIDE [Concomitant]
  7. INSULIN [Concomitant]

REACTIONS (1)
  - WHEEZING [None]
